FAERS Safety Report 5029403-1 (Version None)
Quarter: 2006Q2

REPORT INFORMATION
  Report Type: 
  Country: None (occurrence: None)
  Receive Date: 20060613
  Receipt Date: 20060602
  Transmission Date: 20061013
  Serious: Yes (Other)
  Sender: FDA-Public Use
  Company Number: 2006072249

PATIENT
  Age: 9 Year
  Sex: Male
  Weight: 29 kg

DRUGS (3)
  1. DILANTIN [Suspect]
     Indication: ILL-DEFINED DISORDER
     Dosage: 180 MG (1 D),ORAL
     Route: 048
     Dates: start: 19810317, end: 19810422
  2. CIMETIDINE [Suspect]
  3. DEXAMETHASONE [Concomitant]

REACTIONS (6)
  - CONJUNCTIVITIS [None]
  - FACE OEDEMA [None]
  - PYREXIA [None]
  - RASH [None]
  - STOMATITIS [None]
  - URTICARIA [None]
